FAERS Safety Report 6878925-7 (Version None)
Quarter: 2010Q3

REPORT INFORMATION
  Report Type: 
  Country: None (occurrence: None)
  Receive Date: 20100728
  Receipt Date: 20100712
  Transmission Date: 20110219
  Serious: Yes (Hospitalization, Other)
  Sender: FDA-Public Use
  Company Number: JP-BAYER-201030405GPV

PATIENT
  Age: 71 Year
  Sex: Male

DRUGS (1)
  1. SORAFENIB [Suspect]
     Indication: RENAL CELL CARCINOMA

REACTIONS (4)
  - DYSPNOEA [None]
  - LUNG ABSCESS [None]
  - PULMONARY NECROSIS [None]
  - SEPTIC SHOCK [None]
